FAERS Safety Report 5890340-1 (Version None)
Quarter: 2008Q3

REPORT INFORMATION
  Report Type: 
  Country: None (occurrence: None)
  Receive Date: 20080918
  Receipt Date: 20080908
  Transmission Date: 20090109
  Serious: Yes (Hospitalization)
  Sender: FDA-Public Use
  Company Number: 2007BI022097

PATIENT
  Age: 58 Year
  Sex: Female
  Weight: 96.6162 kg

DRUGS (15)
  1. AVONEX [Suspect]
     Indication: MULTIPLE SCLEROSIS
     Dosage: 30 UG; QW; IM
     Route: 030
     Dates: start: 19960701
  2. METHOTREXATE (CON.) [Concomitant]
  3. PROPOXYPHENE (CON.) [Concomitant]
  4. NITROFURANTOIN (CON.) [Concomitant]
  5. POTASSIUM (CON.) [Concomitant]
  6. CLONAZEPAM (CON.) [Concomitant]
  7. BACLOFEN (CON.) [Concomitant]
  8. MEDROXYPROGESTRONE (CON.) [Concomitant]
  9. ESTRADIOL (CON.) [Concomitant]
  10. ASA EC (CON.) [Concomitant]
  11. MIRAPEX (CON.) [Concomitant]
  12. MULTIVITAMIN (CON.) [Concomitant]
  13. NABUMETONE (CON.) [Concomitant]
  14. LOVASTATIN (CON.) [Concomitant]
  15. SULFASALAZINE EC (CON.) [Concomitant]

REACTIONS (4)
  - BLOOD CHOLESTEROL INCREASED [None]
  - BLOOD TRIGLYCERIDES INCREASED [None]
  - CORONARY ARTERY DISEASE [None]
  - LOW DENSITY LIPOPROTEIN INCREASED [None]
